FAERS Safety Report 21977102 (Version 5)
Quarter: 2023Q1

REPORT INFORMATION
  Report Type: Report from Study
  Country: US (occurrence: US)
  Receive Date: 20230210
  Receipt Date: 20230330
  Transmission Date: 20230417
  Serious: Yes (Death)
  Sender: FDA-Public Use
  Company Number: US-GILEAD-2023-0615565

PATIENT
  Age: 16 Year
  Sex: Male

DRUGS (9)
  1. AMPHOTERICIN B [Suspect]
     Active Substance: AMPHOTERICIN B
     Indication: Candida infection
     Dosage: UNK, UNK, UNKNOWN FREQ.
     Route: 065
  2. AMPHOTERICIN B [Suspect]
     Active Substance: AMPHOTERICIN B
     Indication: Bronchopulmonary aspergillosis
  3. AMPHOTERICIN B [Suspect]
     Active Substance: AMPHOTERICIN B
     Indication: Hepatic infection fungal
  4. ISAVUCONAZOLE [Suspect]
     Active Substance: ISAVUCONAZOLE
     Indication: Product used for unknown indication
     Dosage: UNK UNK, UNKNOWN FREQ.
     Route: 065
  5. MICAFUNGIN [Concomitant]
     Active Substance: MICAFUNGIN
     Indication: Product used for unknown indication
     Dosage: UNK UNK, UNKNOWN FREQ.
     Route: 065
  6. SARGRAMOSTIM [Concomitant]
     Active Substance: SARGRAMOSTIM
     Indication: Bronchopulmonary aspergillosis
     Dosage: 250 ?G/M2, ONCE DAILY (WHEN ANC {500)
     Route: 065
  7. SARGRAMOSTIM [Concomitant]
     Active Substance: SARGRAMOSTIM
     Indication: Trichosporon infection
     Dosage: 100 ?G/M2, THRICE WEEKLY (WHEN ANC }500)UNK
     Route: 065
  8. SARGRAMOSTIM [Concomitant]
     Active Substance: SARGRAMOSTIM
     Indication: Hepatic infection fungal
  9. POSACONAZOLE [Concomitant]
     Active Substance: POSACONAZOLE
     Indication: Product used for unknown indication
     Dosage: UNK UNK, UNKNOWN FREQ.
     Route: 065

REACTIONS (2)
  - Infusion related reaction [Fatal]
  - Off label use [Unknown]
